FAERS Safety Report 18746030 (Version 1)
Quarter: 2021Q1

REPORT INFORMATION
  Report Type: Spontaneous
  Country: US (occurrence: US)
  Receive Date: 20210115
  Receipt Date: 20210115
  Transmission Date: 20210419
  Serious: Yes (Other)
  Sender: FDA-Public Use
  Company Number: US-DOVA PHARMACEUTICALS INC.-DOV-000806

PATIENT
  Sex: Male

DRUGS (1)
  1. DOPTELET [Suspect]
     Active Substance: AVATROMBOPAG MALEATE
     Indication: IMMUNE THROMBOCYTOPENIA
     Dosage: 20 MILLIGRAM, THREE TIMES A WEEK
     Route: 048
     Dates: start: 20190801, end: 20200701

REACTIONS (1)
  - Portal vein thrombosis [Unknown]

NARRATIVE: CASE EVENT DATE: 20200701
